FAERS Safety Report 5488153-8 (Version None)
Quarter: 2007Q4

REPORT INFORMATION
  Report Type: 
  Country: None (occurrence: None)
  Receive Date: 20071005
  Receipt Date: 20070730
  Transmission Date: 20080405
  Serious: No
  Sender: FDA-Public Use
  Company Number: PHEH2007US10512

PATIENT
  Age: 75 Year
  Sex: Female

DRUGS (14)
  1. TEKTURNA [Suspect]
     Dosage: 150 MG
  2. BENICAR [Concomitant]
  3. QUINAPRIL HCL [Concomitant]
  4. COMBIVENT [Concomitant]
  5. CARDURA [Concomitant]
  6. PRILOSEC [Concomitant]
  7. VYTORIN [Concomitant]
  8. PROCARDIA XL [Concomitant]
  9. TEVETEN [Concomitant]
  10. HUMULIN N [Concomitant]
  11. RODAZOL (AMINOGLUTETHIMIDE) [Concomitant]
  12. DARVOCET-N 100 [Concomitant]
  13. CENTRUM SILVER (ASCORBIC ACID, CALCIUM, MINERALS NOS, RETINOL, TOCOPHE [Concomitant]
  14. ASPIRIN [Concomitant]

REACTIONS (4)
  - ABDOMINAL PAIN UPPER [None]
  - ANXIETY [None]
  - INSOMNIA [None]
  - MIDDLE INSOMNIA [None]
